FAERS Safety Report 25067978 (Version 1)
Quarter: 2025Q1

REPORT INFORMATION
  Report Type: Report from Study
  Country: FI (occurrence: FI)
  Receive Date: 20250312
  Receipt Date: 20250312
  Transmission Date: 20250409
  Serious: Yes (Other)
  Sender: MYLAN
  Company Number: FI-MYLANLABS-2024M1076233

PATIENT
  Age: 30 Year
  Sex: Male

DRUGS (1)
  1. CLOZAPINE [Suspect]
     Active Substance: CLOZAPINE
     Indication: Product used for unknown indication

REACTIONS (7)
  - Myocarditis [Unknown]
  - Pyrexia [Unknown]
  - Ejection fraction decreased [Unknown]
  - C-reactive protein increased [Unknown]
  - Troponin T increased [Unknown]
  - N-terminal prohormone brain natriuretic peptide increased [Unknown]
  - General symptom [Unknown]

NARRATIVE: CASE EVENT DATE: 20240801
